FAERS Safety Report 10233642 (Version 1)
Quarter: 2014Q2

REPORT INFORMATION
  Report Type: Spontaneous
  Country: CO (occurrence: None)
  Receive Date: 20140610
  Receipt Date: 20140610
  Transmission Date: 20141212
  Serious: Yes (Hospitalization)
  Sender: FDA-Public Use
  Company Number: FK201402203

PATIENT
  Age: 12 Year
  Sex: Female

DRUGS (1)
  1. METHOTREXATE [Suspect]
     Indication: ACUTE LYMPHOCYTIC LEUKAEMIA

REACTIONS (4)
  - Hemiparesis [None]
  - Dysarthria [None]
  - Sepsis [None]
  - VIIth nerve paralysis [None]
